FAERS Safety Report 24773789 (Version 1)
Quarter: 2024Q4

REPORT INFORMATION
  Report Type: Spontaneous
  Country: CN (occurrence: CN)
  Receive Date: 20241225
  Receipt Date: 20241225
  Transmission Date: 20250115
  Serious: Yes (Hospitalization)
  Sender: SANOFI AVENTIS
  Company Number: CN-SA-2024SA376737

PATIENT
  Age: 44 Year
  Sex: Female
  Weight: 46.7 kg

DRUGS (24)
  1. OXALIPLATIN [Suspect]
     Active Substance: OXALIPLATIN
     Indication: Chemotherapy
     Dosage: 92 MG, QD
     Route: 041
     Dates: start: 20241126, end: 20241126
  2. OXALIPLATIN [Suspect]
     Active Substance: OXALIPLATIN
     Indication: Anaemia
  3. OXALIPLATIN [Suspect]
     Active Substance: OXALIPLATIN
     Indication: Malignant anorectal neoplasm
  4. OXALIPLATIN [Suspect]
     Active Substance: OXALIPLATIN
     Indication: Duodenal ulcer
  5. OXALIPLATIN [Suspect]
     Active Substance: OXALIPLATIN
     Indication: Metastases to lung
  6. OXALIPLATIN [Suspect]
     Active Substance: OXALIPLATIN
     Indication: Metastases to liver
  7. OXALIPLATIN [Suspect]
     Active Substance: OXALIPLATIN
     Indication: Metastases to bone
  8. FLUOROURACIL [Suspect]
     Active Substance: FLUOROURACIL
     Indication: Chemotherapy
     Dosage: 0.54G QD
     Route: 042
     Dates: start: 20241126, end: 20241126
  9. FLUOROURACIL [Suspect]
     Active Substance: FLUOROURACIL
     Indication: Anaemia
  10. FLUOROURACIL [Suspect]
     Active Substance: FLUOROURACIL
     Indication: Metastases to bone
  11. FLUOROURACIL [Suspect]
     Active Substance: FLUOROURACIL
     Indication: Malignant anorectal neoplasm
  12. FLUOROURACIL [Suspect]
     Active Substance: FLUOROURACIL
     Indication: Metastases to lung
  13. FLUOROURACIL [Suspect]
     Active Substance: FLUOROURACIL
     Indication: Metastases to liver
  14. FLUOROURACIL [Suspect]
     Active Substance: FLUOROURACIL
     Indication: Metastases to bone
  15. FABRAZYME [Suspect]
     Active Substance: AGALSIDASE BETA
     Indication: Chemotherapy
     Dosage: 200MG QD
     Route: 041
     Dates: start: 20241126, end: 20241126
  16. FABRAZYME [Suspect]
     Active Substance: AGALSIDASE BETA
     Indication: Anaemia
  17. FABRAZYME [Suspect]
     Active Substance: AGALSIDASE BETA
     Indication: Metastases to bone
  18. FABRAZYME [Suspect]
     Active Substance: AGALSIDASE BETA
     Indication: Malignant anorectal neoplasm
  19. FABRAZYME [Suspect]
     Active Substance: AGALSIDASE BETA
     Indication: Metastases to lung
  20. FABRAZYME [Suspect]
     Active Substance: AGALSIDASE BETA
     Indication: Metastases to liver
  21. FABRAZYME [Suspect]
     Active Substance: AGALSIDASE BETA
     Indication: Metastases to bone
  22. SODIUM CHLORIDE [Concomitant]
     Active Substance: SODIUM CHLORIDE
     Indication: Chemotherapy
     Dosage: 100ML QD
     Route: 041
     Dates: start: 20241126, end: 20241126
  23. SODIUM CHLORIDE [Concomitant]
     Active Substance: SODIUM CHLORIDE
     Dosage: 40ML QD
     Route: 042
     Dates: start: 20241126, end: 20241126
  24. DEXTROSE [Concomitant]
     Active Substance: DEXTROSE MONOHYDRATE
     Indication: Chemotherapy
     Dosage: 250ML QD
     Route: 041
     Dates: start: 20241126, end: 20241126

REACTIONS (3)
  - White blood cell count decreased [Recovered/Resolved]
  - Neutrophil count decreased [Recovered/Resolved]
  - Product use in unapproved indication [Unknown]

NARRATIVE: CASE EVENT DATE: 20241213
